FAERS Safety Report 6912525-5 (Version None)
Quarter: 2010Q3

REPORT INFORMATION
  Report Type: 
  Country: None (occurrence: None)
  Receive Date: 20100806
  Receipt Date: 20080623
  Transmission Date: 20110219
  Serious: No
  Sender: FDA-Public Use
  Company Number: US-PFIZER INC-2008052452

PATIENT
  Sex: Female
  Weight: 51.818 kg

DRUGS (10)
  1. GLIPIZIDE [Suspect]
     Indication: DIABETES MELLITUS
     Dates: start: 20070101
  2. OSTEO BI-FLEX [Interacting]
     Dates: start: 20080508, end: 20080520
  3. ZOCOR [Concomitant]
  4. METOPROLOL [Concomitant]
  5. FUROSEMIDE [Concomitant]
  6. HYDRALAZINE HCL [Concomitant]
  7. ISOSORBIDE [Concomitant]
  8. LISINOPRIL [Concomitant]
  9. BABYPRIN [Concomitant]
  10. SIMVASTATIN [Concomitant]

REACTIONS (3)
  - DRUG INTERACTION [None]
  - MEMORY IMPAIRMENT [None]
  - MOOD ALTERED [None]
